FAERS Safety Report 25373947 (Version 1)
Quarter: 2025Q2

REPORT INFORMATION
  Report Type: Spontaneous
  Country: US (occurrence: US)
  Receive Date: 20250529
  Receipt Date: 20250529
  Transmission Date: 20250717
  Serious: No
  Sender: PRASCO
  Company Number: US-Prasco Laboratories-PRAS20250240

PATIENT
  Age: 75 Year
  Sex: Female

DRUGS (3)
  1. ESTRADIOL [Suspect]
     Active Substance: ESTRADIOL
     Indication: Atrophic vulvovaginitis
     Route: 067
     Dates: start: 20250523, end: 20250524
  2. ESTRADIOL [Suspect]
     Active Substance: ESTRADIOL
     Route: 067
     Dates: start: 20250428, end: 20250513
  3. METRONIDAZOLE [Suspect]
     Active Substance: METRONIDAZOLE
     Indication: Product used for unknown indication
     Route: 067
     Dates: start: 20250513, end: 20250523

REACTIONS (15)
  - Gastrointestinal disorder [Recovering/Resolving]
  - Dizziness [Not Recovered/Not Resolved]
  - Vulvovaginal burning sensation [Recovering/Resolving]
  - Mental impairment [Recovering/Resolving]
  - Headache [Recovering/Resolving]
  - Vision blurred [Recovering/Resolving]
  - Fluid retention [Recovering/Resolving]
  - Abdominal distension [Recovering/Resolving]
  - Dyspnoea [Recovering/Resolving]
  - Superficial vein prominence [Recovering/Resolving]
  - Vertigo [Not Recovered/Not Resolved]
  - Asthenia [Not Recovered/Not Resolved]
  - Gait disturbance [Not Recovered/Not Resolved]
  - Off label use [None]
  - Wrong technique in product usage process [None]

NARRATIVE: CASE EVENT DATE: 20250401
